FAERS Safety Report 21881032 (Version 2)
Quarter: 2023Q1

REPORT INFORMATION
  Report Type: Spontaneous
  Country: PL (occurrence: PL)
  Receive Date: 20230118
  Receipt Date: 20230125
  Transmission Date: 20230418
  Serious: Yes (Hospitalization, Other)
  Sender: FDA-Public Use
  Company Number: PL-BoehringerIngelheim-2023-BI-213159

PATIENT
  Age: 72 Year
  Sex: Female

DRUGS (1)
  1. OFEV [Suspect]
     Active Substance: NINTEDANIB
     Indication: Idiopathic pulmonary fibrosis
     Dates: start: 20200109, end: 202107

REACTIONS (9)
  - Pulmonary embolism [Unknown]
  - Idiopathic pulmonary fibrosis [Unknown]
  - Weight decreased [Unknown]
  - Idiopathic pulmonary fibrosis [Unknown]
  - Cough [Unknown]
  - Productive cough [Unknown]
  - Weight decreased [Unknown]
  - Decreased appetite [Unknown]
  - Bacterial test positive [Unknown]

NARRATIVE: CASE EVENT DATE: 20210101
